FAERS Safety Report 17580809 (Version 2)
Quarter: 2020Q2

REPORT INFORMATION
  Report Type: Spontaneous
  Country: US (occurrence: US)
  Receive Date: 20200325
  Receipt Date: 20200401
  Transmission Date: 20200713
  Serious: Yes (Hospitalization, Other)
  Sender: FDA-Public Use
  Company Number: US-PFIZER INC-2020125224

PATIENT
  Age: 10 Year
  Sex: Male

DRUGS (6)
  1. DOXORUBICIN HCL [Suspect]
     Active Substance: DOXORUBICIN HYDROCHLORIDE
     Indication: CLEAR CELL SARCOMA OF THE KIDNEY
     Dosage: UNK, CYCLIC (RECEIVED 12 WEEKS OF NEOADJUVANT CHEMOTHERAPY WITH VINCRISTINE, DOXORUBICIN, AND CYCLOP
  2. VINCRISTINE SULFATE. [Suspect]
     Active Substance: VINCRISTINE SULFATE
     Indication: CLEAR CELL SARCOMA OF THE KIDNEY
     Dosage: UNK, CYCLIC (RECEIVED 12 WEEKS OF NEOADJUVANT CHEMOTHERAPY WITH VINCRISTINE, DOXORUBICIN, AND CYCLOP
  3. CARBOPLATIN. [Suspect]
     Active Substance: CARBOPLATIN
     Indication: CLEAR CELL SARCOMA OF THE KIDNEY
     Dosage: UNK, EVERY 3 WEEKS (RECEIVED 12 WEEKS OF NEOADJUVANT CHEMOTHERAPY WITH VINCRISTINE, DOXORUBICIN, AND
  4. CYCLOPHOSPHAMIDE. [Suspect]
     Active Substance: CYCLOPHOSPHAMIDE
     Dosage: UNK, EVERY 3 WEEKS (ALTERNATING WITH CYCLOPHOSPHAMIDE, ETOPOSIDE, AND CARBOPLATIN EVERY 3 WEEKS)
  5. ETOPOSIDE. [Suspect]
     Active Substance: ETOPOSIDE
     Indication: CLEAR CELL SARCOMA OF THE KIDNEY
     Dosage: UNK, EVERY 3 WEEKS (RECEIVED 12 WEEKS OF NEOADJUVANT CHEMOTHERAPY WITH VINCRISTINE, DOXORUBICIN, AND
  6. CYCLOPHOSPHAMIDE. [Suspect]
     Active Substance: CYCLOPHOSPHAMIDE
     Indication: CLEAR CELL SARCOMA OF THE KIDNEY
     Dosage: UNK, CYCLIC (ALTERNATING WITH CYCLOPHOSPHAMIDE, ETOPOSIDE, AND CARBOPLATIN EVERY 3 WEEKS)

REACTIONS (3)
  - Off label use [Unknown]
  - Septic shock [Unknown]
  - Product use in unapproved indication [Unknown]
